FAERS Safety Report 8535736-4 (Version None)
Quarter: 2012Q2

REPORT INFORMATION
  Report Type: 
  Country: None (occurrence: None)
  Receive Date: 20120412
  Receipt Date: 20101004
  Transmission Date: 20120825
  Serious: Yes (Hospitalization, Other)
  Sender: FDA-Public Use
  Company Number: PHEH2009US05310

PATIENT
  Sex: Female
  Weight: 78 kg

DRUGS (14)
  1. OGEN [Suspect]
     Indication: MENOPAUSE
     Dates: start: 19970101, end: 19970101
  2. PROVERA [Suspect]
     Indication: MENOPAUSE
     Dates: start: 19950101, end: 19970101
  3. PREMARIN [Suspect]
     Indication: MENOPAUSE
     Dates: start: 19950101, end: 19960101
  4. PREMARIN [Suspect]
     Indication: MENOPAUSE
     Dates: start: 20000101, end: 20000101
  5. ANTIHYPERTENSIVES (NO INGREDIENTS/SUBSTANCES) [Concomitant]
  6. NAPROXEN [Concomitant]
  7. PREMPRO [Suspect]
     Indication: MENOPAUSE
     Dates: start: 19970101, end: 20050101
  8. ANTICOAGULANTS (ANTICOAGULANTS) [Concomitant]
  9. BIAXIN [Concomitant]
  10. CEPHALEXIN [Concomitant]
  11. ESTALIS COMBIPATCH (ESTRADIOL, NORETHISTERONE ACETATE) TRANS-THERAPEUT [Suspect]
     Indication: MENOPAUSE
     Dosage: 0.05 MG/0.14 MG DAILY, TRANSDERMAL
     Route: 062
     Dates: start: 20010101, end: 20040101
  12. CIPRO [Concomitant]
  13. DIURETICS (NO INGREDIENTS/SUBSTANCES) [Concomitant]
  14. ESTRATEST [Suspect]
     Indication: MENOPAUSE
     Dates: start: 19970101, end: 19980101

REACTIONS (17)
  - LYMPHADENECTOMY [None]
  - BREAST MASS [None]
  - RADIOTHERAPY [None]
  - DEPRESSION [None]
  - BREAST CANCER [None]
  - BREAST PAIN [None]
  - BIOPSY BREAST [None]
  - MASTECTOMY [None]
  - SLEEP DISORDER [None]
  - PARAESTHESIA [None]
  - CHEMOTHERAPY [None]
  - BREAST OPERATION [None]
  - VERTIGO [None]
  - INJURY [None]
  - DEFORMITY [None]
  - PAIN [None]
  - ANXIETY [None]
